FAERS Safety Report 12110509 (Version 4)
Quarter: 2016Q1

REPORT INFORMATION
  Report Type: Spontaneous
  Country: JP (occurrence: JP)
  Receive Date: 20160224
  Receipt Date: 20160310
  Transmission Date: 20160526
  Serious: Yes (Life-Threatening, Other)
  Sender: FDA-Public Use
  Company Number: JP-PFIZER INC-2016102876

PATIENT
  Age: 60 Year
  Sex: Female

DRUGS (4)
  1. VASOLAN /00014302/ [Suspect]
     Active Substance: VERAPAMIL HYDROCHLORIDE
     Indication: HEART RATE ABNORMAL
     Dosage: 120 MG, DAILY
     Route: 048
     Dates: start: 20160121, end: 20160126
  2. ELIQUIS [Suspect]
     Active Substance: APIXABAN
     Indication: ANTICOAGULANT THERAPY
     Dosage: 10 MG, DAILY
     Route: 048
     Dates: start: 20160121, end: 20160126
  3. ALDACTONE A [Suspect]
     Active Substance: SPIRONOLACTONE
     Indication: DIURETIC THERAPY
     Dosage: 25 MG, DAILY
     Route: 048
     Dates: start: 20160121, end: 20160126
  4. LASIX [Suspect]
     Active Substance: FUROSEMIDE
     Indication: DIURETIC THERAPY
     Dosage: 40 MG, DAILY
     Route: 048
     Dates: start: 20160121, end: 20160126

REACTIONS (5)
  - Condition aggravated [Unknown]
  - Liver disorder [Unknown]
  - Coagulopathy [Unknown]
  - Cardiac failure [Unknown]
  - Renal disorder [Unknown]

NARRATIVE: CASE EVENT DATE: 201601
